FAERS Safety Report 15728351 (Version 1)
Quarter: 2018Q4

REPORT INFORMATION
  Report Type: Spontaneous
  Country: US (occurrence: US)
  Receive Date: 20181217
  Receipt Date: 20181217
  Transmission Date: 20190205
  Serious: No
  Sender: FDA-Public Use
  Company Number: US-GLENMARK PHARMACEUTICALS-2018GMK037969

PATIENT

DRUGS (3)
  1. MUPIROCIN. [Suspect]
     Active Substance: MUPIROCIN
     Indication: ARTHROPOD BITE
  2. MUPIROCIN. [Suspect]
     Active Substance: MUPIROCIN
     Indication: WOUND
     Dosage: UNK UNK, QID (4 TIMES A DAY)
     Route: 061
     Dates: start: 20181018
  3. MUPIROCIN. [Suspect]
     Active Substance: MUPIROCIN
     Indication: WOUND INFECTION

REACTIONS (2)
  - Application site pain [Unknown]
  - Product use in unapproved indication [Unknown]

NARRATIVE: CASE EVENT DATE: 20181018
